FAERS Safety Report 23342813 (Version 1)
Quarter: 2023Q4

REPORT INFORMATION
  Report Type: Spontaneous
  Country: JP (occurrence: JP)
  Receive Date: 20231227
  Receipt Date: 20231227
  Transmission Date: 20240109
  Serious: Yes (Life-Threatening, Hospitalization, Disabling, Other)
  Sender: FDA-Public Use
  Company Number: JP-ELI_LILLY_AND_COMPANY-JP202312004933

PATIENT
  Age: 53 Year
  Sex: Male
  Weight: 66 kg

DRUGS (4)
  1. CYRAMZA [Suspect]
     Active Substance: RAMUCIRUMAB
     Indication: Rectosigmoid cancer recurrent
     Dosage: UNK
     Route: 041
     Dates: start: 20230207, end: 20230725
  2. FLUOROURACIL [Concomitant]
     Active Substance: FLUOROURACIL
     Indication: Rectosigmoid cancer recurrent
     Dosage: UNK
     Dates: start: 20230207, end: 20230725
  3. LEVOLEUCOVORIN CALCIUM [Concomitant]
     Active Substance: LEVOLEUCOVORIN CALCIUM
     Indication: Rectosigmoid cancer recurrent
     Dosage: UNK
     Dates: start: 20230207, end: 20230725
  4. IRINOTECAN [Concomitant]
     Active Substance: IRINOTECAN
     Indication: Rectosigmoid cancer recurrent
     Dosage: UNK
     Dates: start: 20230207, end: 20230725

REACTIONS (8)
  - Disseminated intravascular coagulation [Recovered/Resolved]
  - Gastrointestinal haemorrhage [Recovering/Resolving]
  - Atrial flutter [Recovered/Resolved with Sequelae]
  - White blood cell count decreased [Unknown]
  - Cerebral infarction [Recovered/Resolved with Sequelae]
  - Neutrophil count decreased [Unknown]
  - Malignant neoplasm progression [Unknown]
  - Pain in extremity [Unknown]

NARRATIVE: CASE EVENT DATE: 20230215
